FAERS Safety Report 21326428 (Version 1)
Quarter: 2022Q3

REPORT INFORMATION
  Report Type: Spontaneous
  Country: US (occurrence: US)
  Receive Date: 20220913
  Receipt Date: 20220913
  Transmission Date: 20221027
  Serious: Yes (Hospitalization, Other)
  Sender: FDA-Public Use
  Company Number: US-GLENMARK PHARMACEUTICALS-2022GMK074895

PATIENT
  Age: 11 Year
  Sex: Male

DRUGS (2)
  1. METRONIDAZOLE [Suspect]
     Active Substance: METRONIDAZOLE
     Indication: Pyrexia
     Dosage: UNK
     Route: 048
  2. METRONIDAZOLE [Suspect]
     Active Substance: METRONIDAZOLE
     Indication: Diarrhoea haemorrhagic
     Dosage: 400 MILLIGRAM/KILOGRAM (TOTAL DOSE OF 400 MG/KG OVER ONE WEEK)
     Route: 042

REACTIONS (3)
  - Toxic encephalopathy [Unknown]
  - Toxicity to various agents [Unknown]
  - Leukoencephalopathy [Unknown]
